FAERS Safety Report 8912651 (Version 3)
Quarter: 2013Q1

REPORT INFORMATION
  Report Type: Spontaneous
  Country: BE (occurrence: BE)
  Receive Date: 20121116
  Receipt Date: 20130208
  Transmission Date: 20140127
  Serious: Yes (Other)
  Sender: FDA-Public Use
  Company Number: BE-BRISTOL-MYERS SQUIBB COMPANY-17111147

PATIENT
  Age: 36 Year
  Sex: Female

DRUGS (2)
  1. ONGLYZA TABS [Suspect]
     Indication: GLUCOSE TOLERANCE IMPAIRED
     Dates: start: 201206
  2. GLUCOPHAGE [Suspect]
     Indication: GLUCOSE TOLERANCE IMPAIRED

REACTIONS (1)
  - Leukaemia [Unknown]
